FAERS Safety Report 5776786-0 (Version None)
Quarter: 2008Q2

REPORT INFORMATION
  Report Type: 
  Country: None (occurrence: None)
  Receive Date: 20080618
  Receipt Date: 20080618
  Transmission Date: 20081010
  Serious: Yes (Other)
  Sender: FDA-Public Use
  Company Number: A0733569A

PATIENT
  Age: 46 Year
  Sex: Female

DRUGS (2)
  1. ALLI [Suspect]
     Dates: start: 20070401
  2. UNSPECIFIED MEDICATION [Concomitant]

REACTIONS (2)
  - GENITAL HAEMORRHAGE [None]
  - VAGINAL HAEMORRHAGE [None]
